FAERS Safety Report 19469048 (Version 4)
Quarter: 2021Q3

REPORT INFORMATION
  Report Type: Report from Study
  Country: None (occurrence: GB)
  Receive Date: 20210628
  Receipt Date: 20210819
  Transmission Date: 20211014
  Serious: Yes (Death, Other)
  Sender: FDA-Public Use
  Company Number: GB-ABBVIE-21K-167-3958061-00

PATIENT
  Age: 19 Year
  Sex: Male
  Weight: 82.3 kg

DRUGS (4)
  1. NAVITOCLAX [Suspect]
     Active Substance: NAVITOCLAX
     Indication: PRODUCT USED FOR UNKNOWN INDICATION
     Route: 065
     Dates: start: 20210722
  2. VENETOCLAX. [Suspect]
     Active Substance: VENETOCLAX
     Route: 048
     Dates: start: 20210720
  3. CYTARABINE. [Suspect]
     Active Substance: CYTARABINE
     Indication: ACUTE LYMPHOCYTIC LEUKAEMIA
     Route: 042
     Dates: start: 20210618, end: 20210622
  4. VENETOCLAX. [Suspect]
     Active Substance: VENETOCLAX
     Indication: ACUTE LYMPHOCYTIC LEUKAEMIA
     Route: 048
     Dates: start: 20210616, end: 20210618

REACTIONS (7)
  - Off label use [Unknown]
  - White blood cell count abnormal [Unknown]
  - B precursor type acute leukaemia [Fatal]
  - Acute lymphocytic leukaemia refractory [Unknown]
  - Unevaluable event [Fatal]
  - White blood cell count decreased [Fatal]
  - Thrombocytopenia [Fatal]

NARRATIVE: CASE EVENT DATE: 2021
